FAERS Safety Report 21343451 (Version 1)
Quarter: 2022Q3

REPORT INFORMATION
  Report Type: Spontaneous
  Country: FR (occurrence: None)
  Receive Date: 20220916
  Receipt Date: 20220916
  Transmission Date: 20221026
  Serious: Yes (Other)
  Sender: FDA-Public Use
  Company Number: 2022A311399

PATIENT
  Age: 42 Year
  Sex: Female
  Weight: 50 kg

DRUGS (10)
  1. SAPHNELO [Suspect]
     Active Substance: ANIFROLUMAB-FNIA
     Indication: Systemic lupus erythematosus
     Dosage: 300 MG EVERY 4 WEEKS
     Route: 042
     Dates: start: 20220513
  2. OMEPRAZOLE [Concomitant]
     Active Substance: OMEPRAZOLE
  3. XARELTO [Concomitant]
     Active Substance: RIVAROXABAN
  4. ACETATE DE CHLORMADINONE [Concomitant]
  5. PRAZEPAM [Concomitant]
     Active Substance: PRAZEPAM
  6. BENLYSTA [Concomitant]
     Active Substance: BELIMUMAB
  7. REVLIMID [Concomitant]
     Active Substance: LENALIDOMIDE
  8. PREDNISONE [Concomitant]
     Active Substance: PREDNISONE
  9. ESTRADIOL [Concomitant]
     Active Substance: ESTRADIOL
  10. PLAQUENIL [Concomitant]
     Active Substance: HYDROXYCHLOROQUINE SULFATE

REACTIONS (2)
  - Arthralgia [Recovered/Resolved]
  - Oedema peripheral [Not Recovered/Not Resolved]

NARRATIVE: CASE EVENT DATE: 20220517
